FAERS Safety Report 4710663-9 (Version None)
Quarter: 2005Q3

REPORT INFORMATION
  Report Type: 
  Country: None (occurrence: None)
  Receive Date: 20050711
  Receipt Date: 20050629
  Transmission Date: 20060218
  Serious: Yes (Other)
  Sender: FDA-Public Use
  Company Number: GB-MERCK-0506GBR00211

PATIENT
  Age: 62 Year
  Sex: Female
  Weight: 45 kg

DRUGS (5)
  1. ZOCOR [Suspect]
     Indication: BLOOD CHOLESTEROL INCREASED
     Route: 048
     Dates: start: 20010101, end: 20050101
  2. INSULIN, ISOPHANE [Concomitant]
     Route: 058
  3. INSULIN HUMAN [Concomitant]
     Route: 058
  4. ASPIRIN [Concomitant]
     Route: 048
  5. LANSOPRAZOLE [Concomitant]
     Route: 048

REACTIONS (2)
  - BLOOD GLUCOSE FLUCTUATION [None]
  - HYPOGLYCAEMIA [None]
